FAERS Safety Report 7301582-2 (Version None)
Quarter: 2011Q1

REPORT INFORMATION
  Report Type: 
  Country: None (occurrence: None)
  Receive Date: 20110218
  Receipt Date: 20110209
  Transmission Date: 20110831
  Serious: Yes (Other)
  Sender: FDA-Public Use
  Company Number: GB-ELI_LILLY_AND_COMPANY-GB201102002798

PATIENT
  Age: 70 Year
  Sex: Male

DRUGS (1)
  1. CYMBALTA [Suspect]
     Indication: DIABETIC NEUROPATHY
     Dosage: 60 MG, UNKNOWN

REACTIONS (2)
  - BLADDER OBSTRUCTION [None]
  - RENAL FAILURE ACUTE [None]
